FAERS Safety Report 8418631-0 (Version None)
Quarter: 2012Q2

REPORT INFORMATION
  Report Type: 
  Country: None (occurrence: None)
  Receive Date: 20120607
  Receipt Date: 20120531
  Transmission Date: 20120825
  Serious: No
  Sender: FDA-Public Use
  Company Number: BR-ABBOTT-12P-020-0934694-00

PATIENT
  Sex: Female
  Weight: 47 kg

DRUGS (5)
  1. HUMIRA [Suspect]
     Indication: CROHN'S DISEASE
     Route: 058
     Dates: start: 20110501
  2. HUMIRA [Suspect]
     Route: 058
  3. MESALAMINE [Concomitant]
     Indication: COLITIS ULCERATIVE
     Route: 048
     Dates: start: 20110501
  4. TROPINAL [Concomitant]
     Indication: PAIN
     Dosage: 300 MG/3.5 MCG/104 MCG /1MG, AS NEEDED
  5. HUMIRA [Suspect]
     Route: 058

REACTIONS (1)
  - GASTRITIS [None]
